FAERS Safety Report 8524486-6 (Version None)
Quarter: 2012Q3

REPORT INFORMATION
  Report Type: 
  Country: None (occurrence: None)
  Receive Date: 20120720
  Receipt Date: 20120516
  Transmission Date: 20120928
  Serious: No
  Sender: FDA-Public Use
  Company Number: US-MYLANLABS-2012S1010159

PATIENT
  Age: 88 Year
  Sex: Female

DRUGS (3)
  1. BUSPIRONE HCL [Suspect]
     Route: 048
     Dates: start: 20120501
  2. DILTIAZEM [Concomitant]
     Indication: BLOOD PRESSURE INCREASED
     Route: 048
     Dates: start: 20120512
  3. BUSPIRONE HCL [Suspect]
     Indication: ANXIETY
     Route: 048
     Dates: start: 20120501

REACTIONS (2)
  - DIZZINESS [None]
  - NAUSEA [None]
